FAERS Safety Report 11755135 (Version 1)
Quarter: 2015Q4

REPORT INFORMATION
  Report Type: Spontaneous
  Country: IE (occurrence: IE)
  Receive Date: 20151119
  Receipt Date: 20151119
  Transmission Date: 20160304
  Serious: Yes (Other)
  Sender: FDA-Public Use
  Company Number: IE-PFIZER INC-2015391035

PATIENT
  Age: 56 Year
  Sex: Male

DRUGS (1)
  1. CHAMPIX [Suspect]
     Active Substance: VARENICLINE TARTRATE
     Dosage: UNK
     Dates: start: 201510, end: 20151025

REACTIONS (5)
  - Psychotic disorder [Recovered/Resolved with Sequelae]
  - Agitation [Recovered/Resolved with Sequelae]
  - Amnesia [Recovered/Resolved with Sequelae]
  - General physical condition abnormal [Recovered/Resolved with Sequelae]
  - Aggression [Recovered/Resolved with Sequelae]

NARRATIVE: CASE EVENT DATE: 20151025
